FAERS Safety Report 20093696 (Version 2)
Quarter: 2022Q1

REPORT INFORMATION
  Report Type: Report from Study
  Country: BR (occurrence: BR)
  Receive Date: 20211121
  Receipt Date: 20220206
  Transmission Date: 20220423
  Serious: Yes (Death, Other)
  Sender: FDA-Public Use
  Company Number: BR-NOVARTISPH-NVSC2021BR263897

PATIENT
  Age: 50 Year
  Sex: Female

DRUGS (5)
  1. TAMOXIFEN CITRATE [Suspect]
     Active Substance: TAMOXIFEN CITRATE
     Indication: Hormone receptor positive HER2 negative breast cancer
     Dosage: UNK
     Route: 065
     Dates: start: 201506
  2. LETROZOLE [Concomitant]
     Active Substance: LETROZOLE
     Indication: Product used for unknown indication
     Dosage: UNK (6TH PALLIATIVE LINE)
     Route: 065
     Dates: start: 202010
  3. LEVOTHYROXINE [Concomitant]
     Active Substance: LEVOTHYROXINE
     Indication: Hypothyroidism
     Dosage: 50 UG, QD
     Route: 065
  4. EXEMESTANE [Concomitant]
     Active Substance: EXEMESTANE
     Indication: Product used for unknown indication
     Dosage: UNK (4TH PALLIATIVE LINE)
     Route: 065
  5. ABEMACICLIB [Concomitant]
     Active Substance: ABEMACICLIB
     Indication: Product used for unknown indication
     Dosage: UNK (5TH LINE PALLIATIVE)
     Route: 065
     Dates: start: 201908

REACTIONS (10)
  - Death [Fatal]
  - Bone neoplasm [Unknown]
  - Mediastinal disorder [Unknown]
  - Back pain [Unknown]
  - Bone lesion [Unknown]
  - Intervertebral disc disorder [Unknown]
  - Bone disorder [Unknown]
  - Hilar lymphadenopathy [Unknown]
  - Lymphadenopathy [Unknown]
  - Carbohydrate antigen 15-3 increased [Unknown]

NARRATIVE: CASE EVENT DATE: 20161201
